FAERS Safety Report 7233365-6 (Version None)
Quarter: 2011Q1

REPORT INFORMATION
  Report Type: 
  Country: None (occurrence: None)
  Receive Date: 20110119
  Receipt Date: 20110114
  Transmission Date: 20110831
  Serious: Yes (Death)
  Sender: FDA-Public Use
  Company Number: JP-BRISTOL-MYERS SQUIBB COMPANY-15071665

PATIENT
  Age: 71 Year
  Sex: Female
  Weight: 51 kg

DRUGS (5)
  1. SPRYCEL [Suspect]
     Indication: CHRONIC MYELOID LEUKAEMIA
     Dosage: 100X1MG/D-25DEC2009-UNK 26DEC09-09JAN10:50X1MG/D 10JAN-16MAR10:50X2MG/D
     Route: 048
     Dates: start: 20091226, end: 20100316
  2. LASIX [Concomitant]
     Route: 048
     Dates: start: 20100222, end: 20100325
  3. ALDACTONE [Concomitant]
     Route: 048
     Dates: start: 20100222, end: 20100325
  4. PREDONINE [Concomitant]
     Dosage: TABS
     Route: 048
     Dates: start: 20100224, end: 20100325
  5. GASPORT [Concomitant]
     Dosage: TABS
     Route: 048
     Dates: start: 20100224, end: 20100325

REACTIONS (2)
  - NEOPLASM MALIGNANT [None]
  - CARDIAC FAILURE [None]
